FAERS Safety Report 5857393-8 (Version None)
Quarter: 2008Q3

REPORT INFORMATION
  Report Type: 
  Country: None (occurrence: None)
  Receive Date: 20080825
  Receipt Date: 20080825
  Transmission Date: 20090109
  Serious: Yes (Other)
  Sender: FDA-Public Use
  Company Number: None

PATIENT
  Age: 58 Year
  Sex: Female
  Weight: 74.8435 kg

DRUGS (9)
  1. ALBUTEROL [Suspect]
     Indication: ASTHMA
     Dosage: 90MCG/ACTVATION 1-2 Q 4-6 INHALED
     Route: 055
     Dates: start: 20070123, end: 20080430
  2. ALBUTEROL [Suspect]
     Indication: CHRONIC OBSTRUCTIVE PULMONARY DISEASE
     Dosage: 90MCG/ACTVATION 1-2 Q 4-6 INHALED
     Route: 055
     Dates: start: 20070123, end: 20080430
  3. ATENOLOL [Concomitant]
  4. AMBIEN [Concomitant]
  5. LORAZEPAM [Concomitant]
  6. IPRATROPIUM BROMIDE [Concomitant]
  7. ADVAIR DISKUS 100/50 [Concomitant]
  8. CLONAZEPAM [Concomitant]
  9. CYANOCOBALAMIN [Concomitant]

REACTIONS (2)
  - VOCAL CORD INFLAMMATION [None]
  - VOCAL CORD POLYP [None]
